FAERS Safety Report 10201672 (Version 2)
Quarter: 2014Q2

REPORT INFORMATION
  Report Type: Spontaneous
  Country: JP (occurrence: JP)
  Receive Date: 20140528
  Receipt Date: 20140613
  Transmission Date: 20141212
  Serious: Yes (Life-Threatening, Hospitalization)
  Sender: FDA-Public Use
  Company Number: JP-SA-2014SA063252

PATIENT
  Age: 71 Year
  Sex: Male

DRUGS (6)
  1. PREDNISOLONE [Suspect]
     Indication: RADIATION PNEUMONITIS
     Route: 048
     Dates: start: 20130214
  2. PLAVIX [Suspect]
     Indication: CEREBRAL INFARCTION
     Route: 048
  3. PLAVIX [Suspect]
     Indication: CEREBRAL INFARCTION
     Route: 048
     Dates: start: 20130209, end: 20130222
  4. PLETAAL [Suspect]
     Indication: CEREBRAL INFARCTION
     Route: 048
  5. PLETAAL [Suspect]
     Indication: CEREBRAL INFARCTION
     Route: 048
     Dates: start: 20130209, end: 20130222
  6. HEPARIN [Concomitant]

REACTIONS (6)
  - Gastrointestinal perforation [Recovered/Resolved]
  - Gastrointestinal haemorrhage [Recovered/Resolved]
  - Haematochezia [Recovered/Resolved]
  - Haematemesis [Recovered/Resolved]
  - Shock haemorrhagic [Recovered/Resolved]
  - Blood pressure decreased [Recovered/Resolved]
